FAERS Safety Report 5598537-5 (Version None)
Quarter: 2008Q1

REPORT INFORMATION
  Report Type: 
  Country: None (occurrence: None)
  Receive Date: 20080122
  Receipt Date: 20070308
  Transmission Date: 20080703
  Serious: No
  Sender: FDA-Public Use
  Company Number: US-BAUSCH-2007BL000756

PATIENT
  Age: 62 Year
  Sex: Male

DRUGS (3)
  1. CARTEOLOL HYDROCHLORIDE [Suspect]
     Indication: GLAUCOMA
     Route: 047
     Dates: start: 20060601, end: 20070312
  2. CARTEOLOL HYDROCHLORIDE [Suspect]
     Route: 047
     Dates: start: 20070320
  3. VITAMINS [Concomitant]
     Indication: VITAMIN SUPPLEMENTATION

REACTIONS (4)
  - LACRIMATION INCREASED [None]
  - NASAL CONGESTION [None]
  - NASOPHARYNGITIS [None]
  - SNEEZING [None]
